FAERS Safety Report 7791715-6 (Version None)
Quarter: 2011Q4

REPORT INFORMATION
  Report Type: 
  Country: None (occurrence: None)
  Receive Date: 20111003
  Receipt Date: 20110930
  Transmission Date: 20120403
  Serious: Yes (Death)
  Sender: FDA-Public Use
  Company Number: TR-JNJFOC-20110910313

PATIENT
  Age: 82 Year
  Sex: Female

DRUGS (14)
  1. CYCLOPHOSPHAMIDE [Suspect]
     Dosage: CYCLE 2
     Route: 065
  2. RITUXIMAB [Suspect]
     Route: 065
  3. DOXORUBICIN HYDROCHLORIDE [Suspect]
     Dosage: CYCLE 1
     Route: 065
  4. VINCRISTINE [Suspect]
     Indication: NON-HODGKIN'S LYMPHOMA
     Route: 065
  5. RITUXIMAB [Suspect]
     Indication: NON-HODGKIN'S LYMPHOMA
     Route: 065
  6. PREDNISONE [Suspect]
     Indication: NON-HODGKIN'S LYMPHOMA
     Dosage: CYCLE 2
     Route: 065
  7. DOXORUBICIN HYDROCHLORIDE [Suspect]
     Dosage: CYCLE 1
     Route: 042
  8. DOXORUBICIN HYDROCHLORIDE [Suspect]
     Dosage: CYCLE 2
     Route: 042
  9. CYCLOPHOSPHAMIDE [Suspect]
     Indication: NON-HODGKIN'S LYMPHOMA
     Route: 065
  10. VINCRISTINE [Suspect]
     Dosage: CYCLE 2
     Route: 065
  11. PREDNISONE [Suspect]
     Route: 065
  12. DOXORUBICIN HYDROCHLORIDE [Suspect]
     Dosage: CYCLE 2
     Route: 065
  13. DOXORUBICIN HYDROCHLORIDE [Suspect]
     Dosage: CYCLE 2
     Route: 042
  14. DOXORUBICIN HYDROCHLORIDE [Suspect]
     Indication: NON-HODGKIN'S LYMPHOMA
     Dosage: CYCLE 1
     Route: 042

REACTIONS (1)
  - FEBRILE NEUTROPENIA [None]
